FAERS Safety Report 24048122 (Version 2)
Quarter: 2024Q3

REPORT INFORMATION
  Report Type: Spontaneous
  Country: US (occurrence: US)
  Receive Date: 20240703
  Receipt Date: 20240718
  Transmission Date: 20241017
  Serious: Yes (Life-Threatening, Hospitalization)
  Sender: TEVA
  Company Number: US-TEVA-VS-3214518

PATIENT
  Age: 56 Year
  Sex: Female

DRUGS (3)
  1. LABETALOL [Suspect]
     Active Substance: LABETALOL\LABETALOL HYDROCHLORIDE
     Indication: Hypertension
     Route: 065
  2. EPINEPHRINE [Concomitant]
     Active Substance: EPINEPHRINE
     Indication: Hypotension
     Route: 065
  3. GLUCAGON [Concomitant]
     Active Substance: GLUCAGON\GLUCAGON HYDROCHLORIDE\WATER
     Indication: Product used for unknown indication
     Route: 065

REACTIONS (3)
  - BRASH syndrome [Recovering/Resolving]
  - Pleural effusion [Recovering/Resolving]
  - Renal impairment [Recovering/Resolving]
